FAERS Safety Report 10821787 (Version 1)
Quarter: 2015Q1

REPORT INFORMATION
  Report Type: Report from Study
  Country: US (occurrence: US)
  Receive Date: 20150218
  Receipt Date: 20150218
  Transmission Date: 20150721
  Serious: No
  Sender: FDA-Public Use
  Company Number: US-ABBVIE-14K-163-1304285-00

PATIENT
  Age: 48 Year
  Sex: Female

DRUGS (3)
  1. HUMIRA [Suspect]
     Active Substance: ADALIMUMAB
     Indication: RHEUMATOID ARTHRITIS
     Route: 065
     Dates: start: 20140930
  2. NAPROXEN. [Concomitant]
     Active Substance: NAPROXEN
     Indication: PAIN
  3. METHOTREXATE [Concomitant]
     Active Substance: METHOTREXATE
     Indication: ARTHRITIS

REACTIONS (3)
  - Injection site pain [Recovered/Resolved]
  - Rheumatoid arthritis [Recovering/Resolving]
  - Injection site pain [Recovered/Resolved]

NARRATIVE: CASE EVENT DATE: 20140930
